FAERS Safety Report 9306098 (Version 1)
Quarter: 2013Q2

REPORT INFORMATION
  Report Type: Spontaneous
  Country: US (occurrence: US)
  Receive Date: 20130523
  Receipt Date: 20130523
  Transmission Date: 20140414
  Serious: No
  Sender: FDA-Public Use
  Company Number: US-BAUSCH-BL-2013-000228

PATIENT
  Age: 59 Year
  Sex: Male

DRUGS (1)
  1. IPRATROPIUM BROMIDE [Suspect]
     Indication: RHINORRHOEA
     Dosage: 2 SPRAYS; AS REQUIRED; NASAL
     Route: 045
     Dates: start: 201208

REACTIONS (1)
  - Drug effect decreased [Unknown]
